FAERS Safety Report 9838437 (Version 1)
Quarter: 2014Q1

REPORT INFORMATION
  Report Type: Spontaneous
  Country: FR (occurrence: FR)
  Receive Date: 20140123
  Receipt Date: 20140123
  Transmission Date: 20141002
  Serious: Yes (Hospitalization)
  Sender: FDA-Public Use
  Company Number: FR-CELGENEUS-056-50794-14012084

PATIENT
  Age: 86 Year
  Sex: Female

DRUGS (7)
  1. VIDAZA [Suspect]
     Indication: ACUTE MYELOID LEUKAEMIA
     Dosage: 130 MILLIGRAM
     Route: 041
     Dates: start: 20130812, end: 20130913
  2. TAZOCILLINE [Concomitant]
     Indication: PYREXIA
     Route: 065
  3. VANCOMYCIN [Concomitant]
     Indication: PYREXIA
     Route: 065
  4. ROCEPHINE [Concomitant]
     Indication: PYREXIA
     Route: 065
  5. ZELITREX [Concomitant]
     Indication: PYREXIA
     Route: 065
  6. FORTUM [Concomitant]
     Indication: PYREXIA
     Route: 065
  7. AUGMENTIN [Concomitant]
     Indication: PYREXIA
     Route: 065

REACTIONS (1)
  - Pulmonary tuberculosis [Recovering/Resolving]
